FAERS Safety Report 13330112 (Version 1)
Quarter: 2017Q1

REPORT INFORMATION
  Report Type: Spontaneous
  Country: FR (occurrence: FR)
  Receive Date: 20170313
  Receipt Date: 20170313
  Transmission Date: 20170428
  Serious: Yes (Hospitalization, Other)
  Sender: FDA-Public Use
  Company Number: FR-JNJFOC-20170303662

PATIENT
  Age: 80 Year
  Sex: Female

DRUGS (6)
  1. BISOPROLOL [Concomitant]
     Active Substance: BISOPROLOL
     Route: 065
  2. CORDARONE [Concomitant]
     Active Substance: AMIODARONE HYDROCHLORIDE
     Route: 065
  3. HALDOL DECANOAS [Suspect]
     Active Substance: HALOPERIDOL DECANOATE
     Indication: VOMITING
     Dosage: TOTAL AMOUNT OF HALOPERIDOL DECANOATE 125 MG
     Route: 058
     Dates: start: 20170109, end: 20170111
  4. LERCAN [Concomitant]
     Active Substance: LERCANIDIPINE
     Route: 065
  5. CANDESARTAN [Concomitant]
     Active Substance: CANDESARTAN
     Route: 065
  6. SKENAN [Suspect]
     Active Substance: MORPHINE SULFATE
     Indication: PAIN
     Route: 065
     Dates: start: 20170106, end: 201701

REACTIONS (10)
  - Off label use [Unknown]
  - Apnoea [Recovered/Resolved]
  - Hypertonia [Recovered/Resolved]
  - Altered state of consciousness [Recovered/Resolved]
  - Wrong drug administered [Recovered/Resolved]
  - Incorrect dose administered [Recovered/Resolved]
  - Incorrect route of drug administration [Unknown]
  - Overdose [Recovered/Resolved]
  - Drug dispensing error [Unknown]
  - Agitation [Recovered/Resolved]

NARRATIVE: CASE EVENT DATE: 201701
